FAERS Safety Report 15281486 (Version 1)
Quarter: 2018Q4

REPORT INFORMATION
  Report Type: Spontaneous
  Country: DE (occurrence: DE)
  Receive Date: 20180815
  Receipt Date: 20180815
  Transmission Date: 20190204
  Serious: Yes (Other)
  Sender: FDA-Public Use
  Company Number: DE-TEVA-2018-DE-940323

PATIENT
  Age: 65 Year
  Sex: Male
  Weight: 74 kg

DRUGS (2)
  1. RAMIPRIL 10 MG (RAMIPRIL) UNKNOWN, 10 MG [Suspect]
     Active Substance: RAMIPRIL
     Indication: HYPERTENSION
     Dosage: HALF TABLET DAILY
     Route: 065
  2. APYDAN EXTENT 300 [Suspect]
     Active Substance: OXCARBAZEPINE
     Indication: TRIGEMINAL NEURALGIA
     Dosage: 300 MILLIGRAM DAILY;
     Route: 048
     Dates: start: 201709, end: 20171115

REACTIONS (3)
  - Breast pain [Recovering/Resolving]
  - Respiratory distress [Recovering/Resolving]
  - Off label use [Recovered/Resolved]
